FAERS Safety Report 15570502 (Version 2)
Quarter: 2019Q1

REPORT INFORMATION
  Report Type: Spontaneous
  Country: US (occurrence: US)
  Receive Date: 20181031
  Receipt Date: 20190222
  Transmission Date: 20190417
  Serious: Yes (Other)
  Sender: FDA-Public Use
  Company Number: US-NOVOPROD-629150

PATIENT
  Age: 84 Year
  Sex: Male

DRUGS (1)
  1. NOVOLIN N [Suspect]
     Active Substance: INSULIN HUMAN
     Indication: PRODUCT USED FOR UNKNOWN INDICATION
     Dosage: UNK
     Route: 058
     Dates: start: 2018

REACTIONS (1)
  - Bladder neoplasm surgery [Recovered/Resolved]

NARRATIVE: CASE EVENT DATE: 2018
